FAERS Safety Report 18144578 (Version 4)
Quarter: 2020Q3

REPORT INFORMATION
  Report Type: Report from Study
  Country: NL (occurrence: NL)
  Receive Date: 20200813
  Receipt Date: 20200909
  Transmission Date: 20201103
  Serious: Yes (Death, Hospitalization)
  Sender: FDA-Public Use
  Company Number: NVSC2020NL222687

PATIENT
  Age: 81 Year
  Sex: Male

DRUGS (4)
  1. DECITABINE. [Suspect]
     Active Substance: DECITABINE
     Indication: MYELODYSPLASTIC SYNDROME
  2. MIDOSTAURIN [Suspect]
     Active Substance: MIDOSTAURIN
     Indication: ACUTE MYELOID LEUKAEMIA
     Dosage: 100 MG, QD
     Route: 048
     Dates: start: 20200723, end: 20200803
  3. MIDOSTAURIN [Suspect]
     Active Substance: MIDOSTAURIN
     Indication: MYELODYSPLASTIC SYNDROME
  4. DECITABINE. [Suspect]
     Active Substance: DECITABINE
     Indication: ACUTE MYELOID LEUKAEMIA
     Dosage: 38 MG, QD
     Route: 042
     Dates: start: 20200713, end: 20200722

REACTIONS (1)
  - Pancytopenia [Fatal]

NARRATIVE: CASE EVENT DATE: 20200803
